FAERS Safety Report 14654496 (Version 2)
Quarter: 2018Q2

REPORT INFORMATION
  Report Type: Other
  Country: CA (occurrence: CA)
  Receive Date: 20180319
  Receipt Date: 20180422
  Transmission Date: 20180711
  Serious: Yes (Hospitalization, Other)
  Sender: FDA-Public Use
  Company Number: CA-APOTEX-2018AP007753

PATIENT
  Age: 72 Year
  Sex: Female

DRUGS (4)
  1. CITALOPRAM [Suspect]
     Active Substance: CITALOPRAM HYDROBROMIDE
     Indication: AGORAPHOBIA
     Dosage: UNK
     Route: 048
  2. PROLIA [Suspect]
     Active Substance: DENOSUMAB
     Indication: AGORAPHOBIA
     Dosage: 60 MG, UNK ONE EVERY SIX MONTHS
     Route: 058
  3. HUMIRA [Suspect]
     Active Substance: ADALIMUMAB
     Indication: ANKYLOSING SPONDYLITIS
     Dosage: 40 MG, UNK ONE EVERY TWO WEEKS
     Route: 058
  4. HUMIRA [Suspect]
     Active Substance: ADALIMUMAB
     Dosage: 40 UNK, UNK ONE EVERY TWO WEEKS
     Route: 058

REACTIONS (4)
  - Pneumonia [Not Recovered/Not Resolved]
  - Tremor [Not Recovered/Not Resolved]
  - Insomnia [Not Recovered/Not Resolved]
  - Hypertension [Not Recovered/Not Resolved]
